FAERS Safety Report 17630383 (Version 1)
Quarter: 2020Q2

REPORT INFORMATION
  Report Type: Spontaneous
  Country: US (occurrence: US)
  Receive Date: 20200402
  Receipt Date: 20200402
  Transmission Date: 20200713
  Serious: No
  Sender: FDA-Public Use
  Company Number: None

PATIENT
  Age: 78 Year
  Sex: Female

DRUGS (1)
  1. ENBREL [Suspect]
     Active Substance: ETANERCEPT
     Dosage: OTHER
     Route: 048
     Dates: start: 200904, end: 202004

REACTIONS (2)
  - Therapeutic product effect incomplete [None]
  - Psoriatic arthropathy [None]

NARRATIVE: CASE EVENT DATE: 20200402
